FAERS Safety Report 6191226-8 (Version None)
Quarter: 2009Q2

REPORT INFORMATION
  Report Type: 
  Country: None (occurrence: None)
  Receive Date: 20090515
  Receipt Date: 20090512
  Transmission Date: 20091009
  Serious: Yes (Other)
  Sender: FDA-Public Use
  Company Number: US-BRISTOL-MYERS SQUIBB COMPANY-14622302

PATIENT
  Age: 33 Year
  Sex: Female

DRUGS (4)
  1. REYATAZ [Suspect]
     Indication: ANTIRETROVIRAL THERAPY
     Dosage: COURSE 1
     Route: 048
  2. VIREAD [Suspect]
     Indication: ANTIRETROVIRAL THERAPY
     Dosage: COURSE 1
     Route: 048
  3. EPIVIR [Suspect]
     Indication: ANTIRETROVIRAL THERAPY
     Dosage: COURSE 1
     Route: 048
  4. NORVIR [Suspect]
     Indication: ANTIRETROVIRAL THERAPY
     Dosage: COURSE 1
     Route: 048

REACTIONS (3)
  - ABORTION SPONTANEOUS [None]
  - DRUG EXPOSURE DURING PREGNANCY [None]
  - PREGNANCY [None]
